FAERS Safety Report 7533092-1 (Version None)
Quarter: 2011Q2

REPORT INFORMATION
  Report Type: 
  Country: None (occurrence: None)
  Receive Date: 20110608
  Receipt Date: 20110603
  Transmission Date: 20111010
  Serious: Yes (Life-Threatening, Hospitalization, Other)
  Sender: FDA-Public Use
  Company Number: AR-MEDIMMUNE-MEDI-0013236

PATIENT
  Sex: Male

DRUGS (4)
  1. SYNAGIS [Suspect]
     Route: 030
     Dates: start: 20110519, end: 20110519
  2. FERROUS SULFATE TAB [Concomitant]
  3. SYNAGIS [Suspect]
     Route: 030
     Dates: start: 20110412, end: 20110412
  4. VITAMIN TAB [Concomitant]

REACTIONS (3)
  - CYANOSIS [None]
  - FEEDING DISORDER NEONATAL [None]
  - INFANTILE APNOEIC ATTACK [None]
